FAERS Safety Report 5926093-8 (Version None)
Quarter: 2008Q4

REPORT INFORMATION
  Report Type: 
  Country: None (occurrence: None)
  Receive Date: 20081016
  Receipt Date: 20081010
  Transmission Date: 20090506
  Serious: Yes (Hospitalization, Other)
  Sender: FDA-Public Use
  Company Number: 2008SP013535

PATIENT
  Age: 43 Year
  Sex: Male
  Weight: 65 kg

DRUGS (6)
  1. TEMODAL [Suspect]
     Indication: GLIOBLASTOMA
     Dosage: 75 MG/M2;QD;PO; 200 MG/M2;QD;PO
     Route: 048
     Dates: start: 20080107, end: 20080201
  2. TEMODAL [Suspect]
     Indication: GLIOBLASTOMA
     Dosage: 75 MG/M2;QD;PO; 200 MG/M2;QD;PO
     Route: 048
     Dates: end: 20080903
  3. TEMODAL [Suspect]
     Indication: GLIOBLASTOMA
     Dosage: 75 MG/M2;QD;PO; 200 MG/M2;QD;PO
     Route: 048
     Dates: start: 20080521
  4. TEMODAL [Suspect]
     Indication: GLIOBLASTOMA
     Dosage: 75 MG/M2;QD;PO; 200 MG/M2;QD;PO
     Route: 048
     Dates: start: 20080702
  5. CORTICOSTEROIDS [Concomitant]
  6. DOLIPRANE [Concomitant]

REACTIONS (3)
  - DRUG INTOLERANCE [None]
  - NEPHROGENIC DIABETES INSIPIDUS [None]
  - WEIGHT DECREASED [None]
